FAERS Safety Report 14460167 (Version 2)
Quarter: 2018Q1

REPORT INFORMATION
  Report Type: Spontaneous
  Country: JP (occurrence: JP)
  Receive Date: 20180130
  Receipt Date: 20180327
  Transmission Date: 20180509
  Serious: Yes (Other)
  Sender: FDA-Public Use
  Company Number: JP-SA-2018SA020804

PATIENT
  Sex: Female

DRUGS (3)
  1. FLUNASE [Concomitant]
     Active Substance: FLUTICASONE PROPIONATE
  2. INTAL [Suspect]
     Active Substance: CROMOLYN SODIUM
     Route: 065
     Dates: start: 201712
  3. DELLEGRA [Suspect]
     Active Substance: FEXOFENADINE HYDROCHLORIDE\PSEUDOEPHEDRINE HYDROCHLORIDE
     Indication: RHINITIS ALLERGIC
     Route: 048
     Dates: start: 201711, end: 201801

REACTIONS (1)
  - Haemorrhage [Not Recovered/Not Resolved]

NARRATIVE: CASE EVENT DATE: 201712
